FAERS Safety Report 4598468-3 (Version None)
Quarter: 2005Q1

REPORT INFORMATION
  Report Type: 
  Country: None (occurrence: None)
  Receive Date: 20050304
  Receipt Date: 20050224
  Transmission Date: 20050727
  Serious: Yes (Hospitalization)
  Sender: FDA-Public Use
  Company Number: US-JNJFOC-20050206571

PATIENT
  Sex: Male
  Weight: 99.79 kg

DRUGS (1)
  1. DURAGESIC-100 [Suspect]
     Route: 062

REACTIONS (3)
  - APPLICATION SITE BLEEDING [None]
  - APPLICATION SITE URTICARIA [None]
  - NEPHROLITHIASIS [None]
